FAERS Safety Report 24059704 (Version 1)
Quarter: 2024Q3

REPORT INFORMATION
  Report Type: Spontaneous
  Country: IT (occurrence: IT)
  Receive Date: 20240708
  Receipt Date: 20240708
  Transmission Date: 20241017
  Serious: Yes (Other)
  Sender: MYLAN
  Company Number: None

PATIENT
  Age: 18 Year
  Sex: Female
  Weight: 57 kg

DRUGS (2)
  1. ARIPIPRAZOLE [Suspect]
     Active Substance: ARIPIPRAZOLE
     Indication: Autism spectrum disorder
     Dosage: 1.5 MILLILITER, TID (1.5 ML MORNING, 1.5 ML AFTERNOON, 1.5 ML EVENING IN ORAL SOLUTION)
     Route: 048
     Dates: start: 202211, end: 20240228
  2. VALPROATE SODIUM [Concomitant]
     Active Substance: VALPROATE SODIUM
     Indication: Partial seizures
     Dosage: 250 MG, BID (250 MG MORNING, 250 MG EVENING ON A FULL STOMACH, 1 APART FROM ARIPIPRAZOLE THERAPY)
     Route: 048

REACTIONS (12)
  - Staring [Recovered/Resolved]
  - Agitation [Recovered/Resolved]
  - Peripheral swelling [Recovered/Resolved]
  - Insomnia [Recovered/Resolved]
  - Photophobia [Recovered/Resolved]
  - Impulse-control disorder [Recovered/Resolved]
  - Rash [Recovered/Resolved]
  - Tardive dyskinesia [Recovered/Resolved]
  - Aggression [Recovered/Resolved]
  - Laryngospasm [Recovered/Resolved]
  - Tremor [Recovered/Resolved]
  - Drug ineffective [Recovered/Resolved]

NARRATIVE: CASE EVENT DATE: 20240210
